FAERS Safety Report 8968905 (Version 2)
Quarter: 2013Q1

REPORT INFORMATION
  Report Type: Spontaneous
  Country: AT (occurrence: None)
  Receive Date: 20121207
  Receipt Date: 20121217
  Transmission Date: 20140127
  Serious: Yes (Life-Threatening, Hospitalization)
  Sender: FDA-Public Use
  Company Number: SP06250

PATIENT
  Age: 58 Year
  Sex: Female
  Weight: 63 kg

DRUGS (3)
  1. MOVIPREP (SOLUTION) [Suspect]
     Dosage: 2 LIT, ORAL
     Route: 048
     Dates: start: 20121111, end: 20121111
  2. AGAFFIN [Concomitant]
  3. MAGNESIUM [Concomitant]

REACTIONS (11)
  - Face oedema [None]
  - Dyspnoea [None]
  - Palpitations [None]
  - Blood sodium abnormal [None]
  - Chills [None]
  - Nausea [None]
  - Vomiting [None]
  - Blood calcium abnormal [None]
  - Abdominal pain [None]
  - Panic attack [None]
  - Convulsion [None]
